FAERS Safety Report 5821424-1 (Version None)
Quarter: 2008Q3

REPORT INFORMATION
  Report Type: 
  Country: None (occurrence: None)
  Receive Date: 20080722
  Receipt Date: 20080722
  Transmission Date: 20090109
  Serious: Yes (Congenital Anomaly)
  Sender: FDA-Public Use
  Company Number: None

PATIENT
  Sex: Male
  Weight: 2.7216 kg

DRUGS (1)
  1. TERBUTALINE SULFATE [Suspect]
     Indication: PREMATURE LABOUR
     Dosage: QUITE OFTEN PO, 30 WEEKS UNTIL 39 WEEKS
     Route: 048

REACTIONS (6)
  - CONGENITAL ANOMALY [None]
  - CONTUSION [None]
  - INTENTIONAL SELF-INJURY [None]
  - MATERNAL DRUGS AFFECTING FOETUS [None]
  - PERIVENTRICULAR NODULAR HETEROTOPIA [None]
  - UMBILICAL CORD AROUND NECK [None]
